FAERS Safety Report 7723958-1 (Version None)
Quarter: 2011Q3

REPORT INFORMATION
  Report Type: 
  Country: None (occurrence: None)
  Receive Date: 20110901
  Receipt Date: 20110819
  Transmission Date: 20111222
  Serious: Yes (Life-Threatening, Hospitalization, Other)
  Sender: FDA-Public Use
  Company Number: US-ELI_LILLY_AND_COMPANY-US201107002003

PATIENT
  Sex: Female

DRUGS (19)
  1. CELEBREX [Concomitant]
  2. DOCUSATE SODIUM [Concomitant]
  3. FENTANYL [Concomitant]
  4. FLUOXETINE [Concomitant]
  5. MORPHINE SULFATE [Concomitant]
  6. LUNESTA [Concomitant]
  7. DILAUDID [Concomitant]
  8. LEVOTHYROXINE SODIUM [Concomitant]
  9. LIPITOR [Concomitant]
  10. OXYCODONE HCL [Concomitant]
  11. MULTI-VITAMIN [Concomitant]
  12. TAZIDIME [Concomitant]
  13. CALCIUM CARBONATE [Concomitant]
  14. BYSTOLIC [Concomitant]
  15. FERROUS SULFATE TAB [Concomitant]
  16. NEURONTIN [Concomitant]
  17. PROZAC [Concomitant]
  18. FORTEO [Suspect]
     Indication: OSTEOPOROSIS
     Dosage: 20 UG, QD
     Route: 065
     Dates: start: 20110625, end: 20110720
  19. GABAPENTIN [Concomitant]

REACTIONS (4)
  - INJECTION SITE ERYTHEMA [None]
  - CYSTITIS [None]
  - SPINAL DEFORMITY [None]
  - RESPIRATORY ARREST [None]
